FAERS Safety Report 16913111 (Version 1)
Quarter: 2019Q4

REPORT INFORMATION
  Report Type: Spontaneous
  Country: DK (occurrence: DK)
  Receive Date: 20191014
  Receipt Date: 20191014
  Transmission Date: 20200122
  Serious: Yes (Hospitalization)
  Sender: FDA-Public Use
  Company Number: DK-009507513-1910DNK006506

PATIENT
  Age: 74 Year
  Sex: Male

DRUGS (4)
  1. NAVELBINE [Suspect]
     Active Substance: VINORELBINE TARTRATE
     Indication: LUNG CANCER METASTATIC
     Dosage: 160 MILLIGRAM (DOSE: 2 TABLETS EIGHT (8) TIMES IN TOTAL, STRENGTH: 80 MILLIGRAM (MG))
     Route: 048
     Dates: start: 20190502
  2. ZOLEDRONIC ACID [Concomitant]
     Active Substance: ZOLEDRONIC ACID
     Indication: METASTASES TO BONE
     Dosage: 4 MILLIGRAM (STRENGTH: 4 MG/100ML)
     Dates: start: 20190522
  3. KEYTRUDA [Suspect]
     Active Substance: PEMBROLIZUMAB
     Indication: LUNG CANCER METASTATIC
     Dosage: UNK (STRENGTH: 25 MG/MILLILITER (ML)) (THE PATIENT RECEIVED THREE (3) INJECTIONS IN TOTAL)
     Route: 042
     Dates: start: 20190523
  4. CARBOPLATIN. [Suspect]
     Active Substance: CARBOPLATIN
     Indication: LUNG CANCER METASTATIC
     Dosage: 730 MILLIGRAM (STRENGTH: 10 MG/ML) (THE PATIENT RECEIVED FOUR (4) INJECTIONS IN TOTAL)
     Route: 042
     Dates: start: 20190502

REACTIONS (1)
  - Pulmonary embolism [Not Recovered/Not Resolved]

NARRATIVE: CASE EVENT DATE: 201906
